FAERS Safety Report 15543820 (Version 1)
Quarter: 2018Q4

REPORT INFORMATION
  Report Type: Spontaneous
  Country: IR (occurrence: IR)
  Receive Date: 20181023
  Receipt Date: 20181023
  Transmission Date: 20190205
  Serious: Yes (Other)
  Sender: FDA-Public Use
  Company Number: PHHY2018IR129776

PATIENT

DRUGS (4)
  1. FLUDARABINE [Suspect]
     Active Substance: FLUDARABINE PHOSPHATE
     Indication: ACUTE LEUKAEMIA
     Dosage: 30 MG/M2, QD (BY 30 MIN INFUSION DAYS 1 TO 3)
     Route: 042
  2. MITOXANTRONE [Suspect]
     Active Substance: MITOXANTRONE HYDROCHLORIDE
     Indication: ACUTE LEUKAEMIA
     Dosage: 10 MG/M2, UNK (30MIN INFUSION))
     Route: 042
  3. CYTARABINE. [Suspect]
     Active Substance: CYTARABINE
     Indication: ACUTE LEUKAEMIA
     Dosage: 1 G/M2, UNK (ON DAYS 1 TO 3 BY A TWO HOUR INFUSION FOLLOWED IN 4 HOURS AFTER FLUDARABINE INFUSION )
     Route: 042
  4. GRANULOCYTE COLONY STIMULATING FACTOR [Suspect]
     Active Substance: GRANULOCYTE COLONY-STIMULATING FACTOR NOS
     Indication: ACUTE LEUKAEMIA
     Dosage: 300 UG, QD (ON DAYS 1 TO 3 GIVEN 12 HOURS BEFORE FLUDARABINE)
     Route: 058

REACTIONS (2)
  - Pseudomonas infection [Unknown]
  - Cellulitis [Unknown]
